FAERS Safety Report 9901437 (Version 1)
Quarter: 2014Q1

REPORT INFORMATION
  Report Type: Spontaneous
  Country: CH (occurrence: CH)
  Receive Date: 20140217
  Receipt Date: 20140217
  Transmission Date: 20141002
  Serious: Yes (Other)
  Sender: FDA-Public Use
  Company Number: CH-NOVOPROD-400089

PATIENT
  Age: 52 Year
  Sex: Female

DRUGS (1)
  1. KLIOGEST [Suspect]
     Indication: OESTROGEN DEFICIENCY
     Dosage: 1 TAB, QD
     Route: 048
     Dates: start: 2012, end: 20131121

REACTIONS (1)
  - Retinal vasculitis [Recovered/Resolved]
